FAERS Safety Report 9240298 (Version 1)
Quarter: 2013Q2

REPORT INFORMATION
  Report Type: Spontaneous
  Country: GB (occurrence: None)
  Receive Date: 20130417
  Receipt Date: 20130417
  Transmission Date: 20140414
  Serious: Yes (Hospitalization)
  Sender: FDA-Public Use
  Company Number: 1667394

PATIENT
  Age: 61 Year
  Sex: Male

DRUGS (4)
  1. DACARBAZINE [Suspect]
     Indication: HODGKIN^S DISEASE STAGE IV
     Dosage: CYCLICAL
  2. VINCRISTINE SULFATE [Suspect]
     Indication: HODGKIN^S DISEASE STAGE IV
     Dosage: CYCLICAL
  3. DOXORUBICIN HYDROCHLORIDE [Suspect]
     Indication: HODGKIN^S DISEASE STAGE IV
     Dosage: CYCLICAL
  4. BLEOMYCIN [Suspect]
     Indication: HODGKIN^S DISEASE STAGE IV

REACTIONS (3)
  - Vascular occlusion [None]
  - Vasospasm [None]
  - Raynaud^s phenomenon [None]
